FAERS Safety Report 16354643 (Version 5)
Quarter: 2020Q3

REPORT INFORMATION
  Report Type: Spontaneous
  Country: US (occurrence: US)
  Receive Date: 20190524
  Receipt Date: 20200716
  Transmission Date: 20201102
  Serious: Yes (Other)
  Sender: FDA-Public Use
  Company Number: US-PFIZER INC-2019221515

PATIENT
  Age: 50 Year
  Sex: Male

DRUGS (1)
  1. LYRICA [Suspect]
     Active Substance: PREGABALIN
     Dosage: 200 MG

REACTIONS (4)
  - Fatigue [Unknown]
  - Product prescribing error [Unknown]
  - Malaise [Unknown]
  - Seizure [Unknown]
